FAERS Safety Report 24030920 (Version 8)
Quarter: 2024Q4

REPORT INFORMATION
  Report Type: Report from Study
  Country: BE (occurrence: BE)
  Receive Date: 20240628
  Receipt Date: 20241030
  Transmission Date: 20250115
  Serious: Yes (Other)
  Sender: CSL BEHRING
  Company Number: BE-BEH-2024174500

PATIENT
  Age: 40 Year
  Sex: Male

DRUGS (6)
  1. HIZENTRA [Suspect]
     Active Substance: HUMAN IMMUNOGLOBULIN G
     Indication: Primary immunodeficiency syndrome
     Dosage: 4G (20ML) 1X/WEEK
     Route: 058
     Dates: start: 20240614, end: 20240913
  2. OMEPRAZOLE [Concomitant]
     Active Substance: OMEPRAZOLE
     Dosage: 40 MG, OD
  3. OTILONIUM BROMIDE [Concomitant]
     Active Substance: OTILONIUM BROMIDE
     Dosage: UNK, QD
  4. ESCITALOPRAM [Concomitant]
     Active Substance: ESCITALOPRAM OXALATE
     Dosage: 20 MG, OD
  5. LYRICA [Concomitant]
     Active Substance: PREGABALIN
     Dosage: 150 MG
  6. QUETIAPINE [Concomitant]
     Active Substance: QUETIAPINE
     Dosage: 50 MG IN THE EVENING

REACTIONS (15)
  - Amnesia [Unknown]
  - Dyspnoea [Unknown]
  - Dizziness [Unknown]
  - Feeling drunk [Unknown]
  - Dizziness [Unknown]
  - Feeling drunk [Recovered/Resolved]
  - Headache [Recovered/Resolved]
  - Nausea [Recovered/Resolved]
  - Erythema [Recovered/Resolved]
  - Arthralgia [Recovered/Resolved]
  - Arthralgia [Recovered/Resolved]
  - Rash [Unknown]
  - Pruritus [Unknown]
  - Arthralgia [Unknown]
  - Therapy cessation [Unknown]

NARRATIVE: CASE EVENT DATE: 20240619
